FAERS Safety Report 15008370 (Version 1)
Quarter: 2018Q2

REPORT INFORMATION
  Report Type: Spontaneous
  Country: GB (occurrence: GB)
  Receive Date: 20180613
  Receipt Date: 20180613
  Transmission Date: 20180711
  Serious: Yes (Other)
  Sender: FDA-Public Use
  Company Number: GB-ALLERGAN-1830741US

PATIENT
  Sex: Female

DRUGS (2)
  1. MEMANTINE HCL;DONEPEZIL HCL UNK [Suspect]
     Active Substance: DONEPEZIL HYDROCHLORIDE\MEMANTINE HYDROCHLORIDE
     Indication: DEMENTIA ALZHEIMER^S TYPE
     Route: 065
  2. MEMANTINE HCL;DONEPEZIL HCL UNK [Suspect]
     Active Substance: DONEPEZIL HYDROCHLORIDE\MEMANTINE HYDROCHLORIDE
     Indication: SEDATIVE THERAPY

REACTIONS (2)
  - Coma [Unknown]
  - Dementia Alzheimer^s type [Unknown]
